FAERS Safety Report 12261306 (Version 1)
Quarter: 2016Q2

REPORT INFORMATION
  Report Type: Spontaneous
  Country: US (occurrence: None)
  Receive Date: 20160412
  Receipt Date: 20160412
  Transmission Date: 20160815
  Serious: No
  Sender: FDA-Public Use
  Company Number: None

PATIENT
  Age: 85 Year
  Sex: Female

DRUGS (1)
  1. IBRANCE [Suspect]
     Active Substance: PALBOCICLIB
     Dosage: QD FOR 21 OF 28
     Route: 048

REACTIONS (2)
  - Thrombosis [None]
  - Drug dose omission [None]

NARRATIVE: CASE EVENT DATE: 20160408
